FAERS Safety Report 7828823-7 (Version None)
Quarter: 2011Q4

REPORT INFORMATION
  Report Type: 
  Country: None (occurrence: None)
  Receive Date: 20111020
  Receipt Date: 20110926
  Transmission Date: 20120403
  Serious: Yes (Other)
  Sender: FDA-Public Use
  Company Number: JP-BAYER-2011-091396

PATIENT
  Sex: Male

DRUGS (2)
  1. TAKEPRON [Suspect]
     Dosage: UNK
     Route: 048
     Dates: end: 20110901
  2. ASPIRIN [Suspect]
     Dosage: UNK
     Route: 048
     Dates: start: 20070101, end: 20110927

REACTIONS (1)
  - COLITIS MICROSCOPIC [None]
